FAERS Safety Report 16022499 (Version 1)
Quarter: 2019Q1

REPORT INFORMATION
  Report Type: Spontaneous
  Country: IN (occurrence: IN)
  Receive Date: 20190301
  Receipt Date: 20190301
  Transmission Date: 20190418
  Serious: Yes (Death)
  Sender: FDA-Public Use
  Company Number: PHHY2019IN045657

PATIENT

DRUGS (4)
  1. SODIUM CHLORIDE. [Suspect]
     Active Substance: SODIUM CHLORIDE
     Indication: FOETAL EXPOSURE DURING PREGNANCY
     Dosage: MATERNAL DOSE: SODIUM CHLORIDE 0.9%
     Route: 064
  2. ONDANSETRON [Suspect]
     Active Substance: ONDANSETRON
     Indication: FOETAL EXPOSURE DURING PREGNANCY
     Dosage: MATRENAL DOSE: 4 MG INTRAVENOUSLY EVERY 8 HOURS
     Route: 064
  3. HARTMANN^S SOLUTION [Suspect]
     Active Substance: CALCIUM CHLORIDE\POTASSIUM CHLORIDE\SODIUM CHLORIDE\SODIUM LACTATE
     Indication: FOETAL EXPOSURE DURING PREGNANCY
     Route: 064
  4. PROMETHAZINE [Suspect]
     Active Substance: PROMETHAZINE\PROMETHAZINE HYDROCHLORIDE
     Indication: FOETAL EXPOSURE DURING PREGNANCY
     Dosage: MATERNAL DOSE: 25 MG EVERY 8 HOURS
     Route: 064

REACTIONS (3)
  - Low birth weight baby [Unknown]
  - Premature baby [Fatal]
  - Foetal exposure during pregnancy [Unknown]
